FAERS Safety Report 15995281 (Version 1)
Quarter: 2019Q1

REPORT INFORMATION
  Report Type: Spontaneous
  Country: CA (occurrence: CA)
  Receive Date: 20190222
  Receipt Date: 20190222
  Transmission Date: 20190418
  Serious: Yes (Hospitalization)
  Sender: FDA-Public Use
  Company Number: CA-ASTRAZENECA-2019SE30414

PATIENT
  Age: 66 Year
  Sex: Female

DRUGS (14)
  1. ALVESCO [Suspect]
     Active Substance: CICLESONIDE
     Route: 055
  2. MEPOLIZUMAB [Suspect]
     Active Substance: MEPOLIZUMAB
     Indication: ASTHMA
     Route: 065
  3. PREDNISONE. [Concomitant]
     Active Substance: PREDNISONE
  4. ROSUVASTATIN CALCIUM. [Concomitant]
     Active Substance: ROSUVASTATIN CALCIUM
  5. VENTOLIN HFA [Suspect]
     Active Substance: ALBUTEROL SULFATE
     Indication: ASTHMA
     Route: 055
  6. ZENHALE [Suspect]
     Active Substance: FORMOTEROL FUMARATE\MOMETASONE FUROATE
     Route: 055
  7. TIOTROPIUM [Concomitant]
     Active Substance: TIOTROPIUM
  8. PANTOPRAZOLE SODIUM. [Concomitant]
     Active Substance: PANTOPRAZOLE SODIUM
  9. NICOTINE. [Concomitant]
     Active Substance: NICOTINE
     Indication: SMOKING CESSATION THERAPY
     Route: 062
  10. ZOPICLONE [Concomitant]
     Active Substance: ZOPICLONE
  11. DOMPERIDONE [Concomitant]
     Active Substance: DOMPERIDONE
  12. DAXAS [Concomitant]
     Active Substance: ROFLUMILAST
  13. ATROVENT [Suspect]
     Active Substance: IPRATROPIUM BROMIDE
     Route: 065
  14. AVAMYS [Suspect]
     Active Substance: FLUTICASONE FUROATE
     Indication: SINUSITIS
     Route: 055

REACTIONS (11)
  - Blood count abnormal [Unknown]
  - Influenza [Unknown]
  - Sneezing [Unknown]
  - Wheezing [Unknown]
  - Plethysmography [Unknown]
  - Nasopharyngitis [Unknown]
  - Dyspnoea [Unknown]
  - Asthma [Unknown]
  - Obstructive airways disorder [Unknown]
  - Respiratory gas exchange disorder [Unknown]
  - Drug effect incomplete [Unknown]
